FAERS Safety Report 6440817-5 (Version None)
Quarter: 2009Q4

REPORT INFORMATION
  Report Type: 
  Country: None (occurrence: None)
  Receive Date: 20091116
  Receipt Date: 20091112
  Transmission Date: 20100525
  Serious: Yes (Disabling, Other)
  Sender: FDA-Public Use
  Company Number: FR-ALLERGAN-0915688US

PATIENT
  Age: 36 Year
  Sex: Female

DRUGS (3)
  1. VISTABEL [Suspect]
     Indication: SKIN WRINKLING
     Dosage: UNK
     Route: 058
     Dates: start: 20090126, end: 20090126
  2. VISTABEL [Suspect]
     Dosage: UNK
     Route: 030
  3. VISTABEL [Suspect]
     Dosage: UNK
     Route: 030

REACTIONS (7)
  - ASTHENIA [None]
  - DRY EYE [None]
  - DRY MOUTH [None]
  - EYE PAIN [None]
  - HEADACHE [None]
  - OCULAR DISCOMFORT [None]
  - VERTIGO [None]
